FAERS Safety Report 11757913 (Version 3)
Quarter: 2016Q1

REPORT INFORMATION
  Report Type: Spontaneous
  Country: CH (occurrence: CH)
  Receive Date: 20151120
  Receipt Date: 20160202
  Transmission Date: 20160525
  Serious: Yes (Life-Threatening, Hospitalization)
  Sender: FDA-Public Use
  Company Number: CH-ROCHE-1660545

PATIENT
  Age: 61 Year
  Sex: Male
  Weight: 84 kg

DRUGS (18)
  1. ACTEMRA [Suspect]
     Active Substance: TOCILIZUMAB
     Indication: RHEUMATOID ARTHRITIS
     Route: 058
     Dates: start: 20150716, end: 20151008
  2. NAPROXEN. [Suspect]
     Active Substance: NAPROXEN
     Indication: RHEUMATOID ARTHRITIS
     Route: 048
  3. SALAZOPYRIN [Suspect]
     Active Substance: SULFASALAZINE
     Indication: RHEUMATOID ARTHRITIS
     Route: 048
     Dates: start: 20151002, end: 20151029
  4. SPIRICORT [Concomitant]
     Active Substance: PREDNISOLONE
     Indication: RHEUMATOID ARTHRITIS
     Route: 048
     Dates: end: 20151025
  5. DAFALGAN [Concomitant]
     Active Substance: ACETAMINOPHEN
     Route: 048
  6. METO ZEROK [Concomitant]
     Active Substance: METOPROLOL SUCCINATE
     Indication: CORONARY ARTERY DISEASE
     Route: 048
  7. COVERSUM N [Concomitant]
     Active Substance: PERINDOPRIL
     Indication: CORONARY ARTERY DISEASE
     Route: 048
  8. ASS CARDIO [Concomitant]
     Indication: CORONARY ARTERY DISEASE
     Route: 048
  9. CALCIMAGON-D3 [Concomitant]
     Active Substance: CALCIUM\CHOLECALCIFEROL
     Route: 048
  10. SULFASALAZINE. [Concomitant]
     Active Substance: SULFASALAZINE
     Route: 065
  11. PANTOPRAZOL [Concomitant]
     Active Substance: PANTOPRAZOLE SODIUM
     Indication: GASTRITIS PROPHYLAXIS
     Route: 048
  12. ATORVASTATIN [Concomitant]
     Active Substance: ATORVASTATIN
     Indication: CORONARY ARTERY DISEASE
     Route: 048
  13. METOPROLOL. [Concomitant]
     Active Substance: METOPROLOL
  14. PREDNISONE. [Concomitant]
     Active Substance: PREDNISONE
     Route: 065
  15. ASPIRIN. [Concomitant]
     Active Substance: ASPIRIN
  16. SALAZOPYRIN [Suspect]
     Active Substance: SULFASALAZINE
     Route: 048
     Dates: start: 2015
  17. TRAMADOL. [Concomitant]
     Active Substance: TRAMADOL
     Route: 048
  18. SULFASALAZINE. [Concomitant]
     Active Substance: SULFASALAZINE
     Indication: RHEUMATOID ARTHRITIS
     Route: 065
     Dates: start: 20151002

REACTIONS (10)
  - Angina pectoris [Unknown]
  - Agranulocytosis [Recovering/Resolving]
  - Pharyngitis bacterial [Recovering/Resolving]
  - Peritonsillar abscess [Recovered/Resolved]
  - Off label use [Unknown]
  - Thrombocytopenia [Recovered/Resolved]
  - Cellulitis pharyngeal [Recovering/Resolving]
  - Liver disorder [Unknown]
  - Leukopenia [Recovered/Resolved]
  - Pyrexia [Recovered/Resolved]

NARRATIVE: CASE EVENT DATE: 2015
